FAERS Safety Report 5581093-5 (Version None)
Quarter: 2007Q4

REPORT INFORMATION
  Report Type: 
  Country: None (occurrence: None)
  Receive Date: 20071227
  Receipt Date: 20071213
  Transmission Date: 20080405
  Serious: Yes (Hospitalization, Other)
  Sender: FDA-Public Use
  Company Number: 2007AP001487

PATIENT
  Age: 55 Year
  Sex: Male

DRUGS (1)
  1. LITHIUM CARBONATE CAP [Suspect]
     Indication: SCHIZOAFFECTIVE DISORDER
     Dosage: 300 MG; AM; PO; 600 MG; PM; PO; 1X; PO
     Route: 048

REACTIONS (6)
  - CONFUSIONAL STATE [None]
  - ELECTROCARDIOGRAM QT PROLONGED [None]
  - ELECTROCARDIOGRAM T WAVE INVERSION [None]
  - HALLUCINATION, AUDITORY [None]
  - POISONING DELIBERATE [None]
  - THERAPEUTIC AGENT TOXICITY [None]
